FAERS Safety Report 9786146 (Version 2)
Quarter: 2014Q1

REPORT INFORMATION
  Report Type: Spontaneous
  Country: IT (occurrence: None)
  Receive Date: 20131224
  Receipt Date: 20140116
  Transmission Date: 20141002
  Serious: Yes (Death)
  Sender: FDA-Public Use
  Company Number: 2013AP010693

PATIENT
  Age: 45 Year
  Sex: Female

DRUGS (4)
  1. LEVOFLOXACIN (LEVOFLOXACIN) [Suspect]
     Dosage: TAB_FILM
     Route: 048
     Dates: start: 20131119, end: 20131120
  2. ALLOPURINOL TABLETS (ALLOPURINOL) (TABLETS) [Suspect]
     Route: 048
     Dates: start: 20131104, end: 20131120
  3. METRONIDAZOL (METRONIDAZOLE) [Concomitant]
  4. PIPERACILLIN AND TAZOBACTAM FOR INJECTION (PIPERACILLIN W/TAZOBACTAM) [Concomitant]

REACTIONS (3)
  - Cirrhosis alcoholic [None]
  - Hepatitis alcoholic [None]
  - Toxic epidermal necrolysis [None]
